FAERS Safety Report 11342944 (Version 2)
Quarter: 2015Q3

REPORT INFORMATION
  Report Type: Report from Study
  Country: US (occurrence: US)
  Receive Date: 20150805
  Receipt Date: 20150818
  Transmission Date: 20151125
  Serious: Yes (Other)
  Sender: FDA-Public Use
  Company Number: US-AMGEN-USASP2015074817

PATIENT
  Age: 49 Year
  Sex: Female

DRUGS (1)
  1. NPLATE [Suspect]
     Active Substance: ROMIPLOSTIM
     Indication: PRODUCT USED FOR UNKNOWN INDICATION
     Dosage: UNK UNK, QMO
     Route: 065

REACTIONS (8)
  - Hypoaesthesia [Unknown]
  - Nausea [Unknown]
  - Fatigue [Unknown]
  - Bone pain [Unknown]
  - Headache [Unknown]
  - Platelet count abnormal [Unknown]
  - Paraesthesia [Unknown]
  - Muscle rupture [Unknown]
